FAERS Safety Report 14007026 (Version 4)
Quarter: 2022Q3

REPORT INFORMATION
  Report Type: Spontaneous
  Country: US (occurrence: US)
  Receive Date: 20170925
  Receipt Date: 20220912
  Transmission Date: 20221026
  Serious: Yes (Other)
  Sender: FDA-Public Use
  Company Number: US-LUPIN PHARMACEUTICALS INC.-2017-04741

PATIENT
  Age: 62 Year
  Sex: Male
  Weight: 65.76 kg

DRUGS (15)
  1. LISINOPRIL [Suspect]
     Active Substance: LISINOPRIL
     Indication: Hypertension
     Dosage: 10 MG, QD
     Route: 065
     Dates: start: 2008, end: 2017
  2. LISINOPRIL [Suspect]
     Active Substance: LISINOPRIL
     Dosage: UNK
     Route: 065
     Dates: start: 20170814, end: 20170818
  3. LISINOPRIL [Suspect]
     Active Substance: LISINOPRIL
     Dosage: 2-5 MG TABLET
     Route: 065
     Dates: start: 2017
  4. LISINOPRIL [Suspect]
     Active Substance: LISINOPRIL
     Indication: Hypertension
     Dosage: 5 MG, BID (2 WEEKS AGO ON FRIDAY HE HAD ISSUE WITH LISINOPRIL 5 MG)
     Route: 065
     Dates: start: 2022
  5. LISINOPRIL [Suspect]
     Active Substance: LISINOPRIL
     Dosage: 5 MG, BID
     Route: 065
     Dates: start: 2017
  6. LISINOPRIL [Suspect]
     Active Substance: LISINOPRIL
     Dosage: 5 MG, BID
     Route: 065
     Dates: start: 2005
  7. AMLODIPINE BESYLATE [Suspect]
     Active Substance: AMLODIPINE BESYLATE
     Indication: Product used for unknown indication
     Dosage: UNK
     Route: 065
     Dates: start: 20170814, end: 20170818
  8. AMLODIPINE BESYLATE [Suspect]
     Active Substance: AMLODIPINE BESYLATE
     Dosage: 2.5 MILLIGRAM, QD
     Route: 065
     Dates: start: 20170818
  9. ASPIRIN\CAFFEINE\SALICYLAMIDE [Suspect]
     Active Substance: ASPIRIN\CAFFEINE\SALICYLAMIDE
     Indication: Product used for unknown indication
     Dosage: 2 DF, QD (250 MG)
     Route: 065
  10. LISINOPRIL [Suspect]
     Active Substance: LISINOPRIL
     Indication: Hypertension
     Dosage: 20 MILLIGRAM, QD (PAR PHARMA)
     Route: 048
     Dates: start: 20170731, end: 20170811
  11. RETINOL [Concomitant]
     Active Substance: RETINOL
     Indication: Supplementation therapy
     Dosage: UNK
     Route: 065
  12. VITAMIN C [Concomitant]
     Active Substance: ASCORBIC ACID
     Indication: Supplementation therapy
     Dosage: UNK
     Route: 065
  13. VITAMIN D3 [Concomitant]
     Active Substance: CHOLECALCIFEROL
     Indication: Supplementation therapy
     Dosage: UNK
     Route: 065
  14. TOCOPHEROL [Concomitant]
     Active Substance: TOCOPHEROL
     Indication: Supplementation therapy
     Dosage: UNK
     Route: 065
  15. FISH OIL [Concomitant]
     Active Substance: FISH OIL
     Indication: Supplementation therapy
     Dosage: UNK
     Route: 065

REACTIONS (10)
  - Hypertension [Unknown]
  - Drug ineffective [Unknown]
  - Paraesthesia [Unknown]
  - Trigger finger [Unknown]
  - Poor quality sleep [Unknown]
  - Pruritus [Unknown]
  - Burning sensation [Unknown]
  - Tinnitus [Unknown]
  - Swelling of eyelid [Unknown]
  - Pyrexia [Unknown]

NARRATIVE: CASE EVENT DATE: 20170701
